FAERS Safety Report 11343190 (Version 1)
Quarter: 2015Q3

REPORT INFORMATION
  Report Type: Other
  Country: IT (occurrence: IT)
  Receive Date: 20150806
  Receipt Date: 20150806
  Transmission Date: 20151125
  Serious: Yes (Life-Threatening)
  Sender: FDA-Public Use
  Company Number: IT-LUPIN PHARMACEUTICALS INC.-2015-02331

PATIENT
  Age: 71 Year
  Sex: Male

DRUGS (8)
  1. QUETIAPINE XR [Suspect]
     Active Substance: QUETIAPINE
     Indication: PRODUCT USED FOR UNKNOWN INDICATION
     Dosage: 400 MG
  2. SILODOSIN [Concomitant]
     Active Substance: SILODOSIN
     Indication: BENIGN PROSTATIC HYPERPLASIA
     Route: 065
  3. METOPROLOL [Concomitant]
     Active Substance: METOPROLOL
     Indication: HYPERTENSION
     Route: 065
  4. LAMOTRIGINE. [Concomitant]
     Active Substance: LAMOTRIGINE
     Indication: MENTAL DISORDER
     Dosage: 100 MG
     Route: 065
  5. METFORMIN [Concomitant]
     Active Substance: METFORMIN HYDROCHLORIDE
     Indication: TYPE 2 DIABETES MELLITUS
     Route: 065
  6. QUETIAPINE XR [Suspect]
     Active Substance: QUETIAPINE
     Dosage: 20 G
  7. VENLAFAXINE [Concomitant]
     Active Substance: VENLAFAXINE HYDROCHLORIDE
     Indication: MENTAL DISORDER
     Dosage: 75 MG
     Route: 065
  8. PREGABALIN. [Concomitant]
     Active Substance: PREGABALIN
     Indication: MENTAL DISORDER
     Dosage: 75 MG
     Route: 065

REACTIONS (7)
  - Coma [Recovered/Resolved]
  - Intentional overdose [Unknown]
  - Respiratory failure [Recovered/Resolved]
  - Electrocardiogram QT prolonged [Recovered/Resolved]
  - Agitation [Recovered/Resolved]
  - Tachycardia [Recovered/Resolved]
  - Suicide attempt [Unknown]
